FAERS Safety Report 4276123-7 (Version None)
Quarter: 2004Q1

REPORT INFORMATION
  Report Type: 
  Country: None (occurrence: None)
  Receive Date: 20040121
  Receipt Date: 20031014
  Transmission Date: 20041129
  Serious: Yes (Other)
  Sender: FDA-Public Use
  Company Number: US-GLAXOSMITHKLINE-A0430253A

PATIENT
  Age: 53 Year
  Sex: Male

DRUGS (1)
  1. VALTREX [Suspect]
     Dosage: 500MG TWICE PER DAY
     Route: 048
     Dates: start: 20030901, end: 20031012

REACTIONS (2)
  - DRUG INEFFECTIVE [None]
  - ERYTHEMA MULTIFORME [None]
